FAERS Safety Report 12609631 (Version 1)
Quarter: 2016Q3

REPORT INFORMATION
  Report Type: Spontaneous
  Country: US (occurrence: None)
  Receive Date: 20160729
  Receipt Date: 20160729
  Transmission Date: 20161109
  Serious: Yes (Disabling, Other)
  Sender: FDA-Public Use
  Company Number: None

PATIENT
  Age: 66 Year
  Sex: Male
  Weight: 79.38 kg

DRUGS (19)
  1. PROPRANOLOL [Concomitant]
     Active Substance: PROPRANOLOL\PROPRANOLOL HYDROCHLORIDE
  2. AMLODIPINE BESYLATE TABS, 5 MG QUALITEST [Suspect]
     Active Substance: AMLODIPINE BESYLATE
     Indication: HYPERTENSION
     Route: 048
     Dates: start: 20160510, end: 20160727
  3. SKELAXIN [Concomitant]
     Active Substance: METAXALONE
  4. HYDROCONDONE / APAP [Concomitant]
  5. MULTIVITAMIN [Concomitant]
     Active Substance: VITAMINS
  6. NIACIN. [Concomitant]
     Active Substance: NIACIN
  7. QUNOL UBIQUIDOL COQ10 [Concomitant]
  8. FLUTICASONE PROPIONATE. [Concomitant]
     Active Substance: FLUTICASONE PROPIONATE
  9. OMEPRAZOLE. [Concomitant]
     Active Substance: OMEPRAZOLE
  10. VIAGRA [Concomitant]
     Active Substance: SILDENAFIL CITRATE
  11. BUTAL/APAP/CAFF [Concomitant]
  12. TRAMADOL HCL [Concomitant]
     Active Substance: TRAMADOL HYDROCHLORIDE
  13. FISH OIL + OMEGA III [Concomitant]
  14. MELATONIN [Concomitant]
     Active Substance: MELATONIN
  15. OXYCODONE/ACETAMINOPHEN [Concomitant]
     Active Substance: ACETAMINOPHEN\OXYCODONE HYDROCHLORIDE
  16. NAPROXEN. [Concomitant]
     Active Substance: NAPROXEN
  17. LORAZEPAM. [Concomitant]
     Active Substance: LORAZEPAM
  18. ZOLPIDIEM [Concomitant]
  19. VITAMIN D [Concomitant]
     Active Substance: CHOLECALCIFEROL

REACTIONS (2)
  - Hypoaesthesia [None]
  - Paraesthesia [None]

NARRATIVE: CASE EVENT DATE: 20160728
